FAERS Safety Report 26127610 (Version 1)
Quarter: 2025Q4

REPORT INFORMATION
  Report Type: Spontaneous
  Country: EU (occurrence: EU)
  Receive Date: 20251206
  Receipt Date: 20251206
  Transmission Date: 20260118
  Serious: Yes (Life-Threatening, Hospitalization, Other)
  Sender: ACCORD
  Company Number: EU-Accord-418643

PATIENT
  Age: 60 Year
  Sex: Female

DRUGS (15)
  1. ARIPIPRAZOLE [Suspect]
     Active Substance: ARIPIPRAZOLE
     Indication: Psychotic disorder
     Dates: start: 202211
  2. RISPERIDONE [Suspect]
     Active Substance: RISPERIDONE
     Indication: Psychotic disorder
     Dates: start: 2022
  3. OLANZAPINE [Suspect]
     Active Substance: OLANZAPINE
     Indication: Psychotic disorder
     Dosage: 5 MILLIGRAM
     Dates: start: 2022, end: 2022
  4. FLUPHENAZINE [Suspect]
     Active Substance: FLUPHENAZINE
     Dosage: DIVIDED INTO TWO DOSES
     Dates: start: 202208
  5. BIPERIDEN [Concomitant]
     Active Substance: BIPERIDEN
     Indication: Bradykinesia
     Dosage: 4 MG/DAY DIVIDED INTO TWO DOSES
     Dates: start: 2022
  6. FLUPHENAZINE [Suspect]
     Active Substance: FLUPHENAZINE
     Dosage: REDUCED
     Dates: start: 202210, end: 202210
  7. RISPERIDONE [Suspect]
     Active Substance: RISPERIDONE
     Indication: Psychotic disorder
     Dosage: DIVIDED INTO TWO?DOSES OVER THE FOLLOWING 3 DAYS
  8. ARIPIPRAZOLE [Suspect]
     Active Substance: ARIPIPRAZOLE
     Indication: Psychotic disorder
  9. ARIPIPRAZOLE [Suspect]
     Active Substance: ARIPIPRAZOLE
     Indication: Extrapyramidal disorder
  10. RISPERIDONE [Suspect]
     Active Substance: RISPERIDONE
     Indication: Psychotic disorder
  11. RISPERIDONE [Suspect]
     Active Substance: RISPERIDONE
     Indication: Psychotic disorder
  12. RISPERIDONE [Suspect]
     Active Substance: RISPERIDONE
     Indication: Psychotic disorder
  13. BIPERIDEN [Concomitant]
     Active Substance: BIPERIDEN
     Indication: Muscle rigidity
     Dosage: 4 MG/DAY DIVIDED INTO TWO DOSES
  14. RISPERIDONE [Suspect]
     Active Substance: RISPERIDONE
     Indication: Extrapyramidal disorder
     Dates: start: 2022
  15. BIPERIDEN [Concomitant]
     Active Substance: BIPERIDEN
     Indication: Bradykinesia
     Dosage: 6 MILLIGRAM PER DAY

REACTIONS (15)
  - Akathisia [Recovered/Resolved]
  - Off label use [Unknown]
  - Neuroleptic malignant syndrome [Recovering/Resolving]
  - Bradykinesia [Recovered/Resolved]
  - Cogwheel rigidity [Recovered/Resolved]
  - Respiratory distress [Recovered/Resolved]
  - Pneumonia [Recovered/Resolved]
  - Reduced facial expression [Recovered/Resolved]
  - Dysphagia [Recovered/Resolved]
  - Dysphonia [Recovered/Resolved]
  - Acute respiratory distress syndrome [Unknown]
  - Influenza [Unknown]
  - Pneumonia bacterial [Unknown]
  - Enterobacter infection [Unknown]
  - Staphylococcal infection [Unknown]

NARRATIVE: CASE EVENT DATE: 20220101
